FAERS Safety Report 25074380 (Version 1)
Quarter: 2025Q1

REPORT INFORMATION
  Report Type: Other
  Country: FR (occurrence: FR)
  Receive Date: 20250313
  Receipt Date: 20250313
  Transmission Date: 20250409
  Serious: Yes (Hospitalization, Other)
  Sender: ANI
  Company Number: FR-ANIPHARMA-015912

PATIENT
  Age: 63 Year
  Sex: Female

DRUGS (23)
  1. CYCLOPHOSPHAMIDE [Suspect]
     Active Substance: CYCLOPHOSPHAMIDE
     Indication: Chronic myelomonocytic leukaemia
  2. HYDROXYUREA [Concomitant]
     Active Substance: HYDROXYUREA
     Indication: Chronic myelomonocytic leukaemia
  3. THIOTEPA [Concomitant]
     Active Substance: THIOTEPA
     Indication: Chronic myelomonocytic leukaemia
  4. ETOPOSIDE [Concomitant]
     Active Substance: ETOPOSIDE
     Indication: Chronic myelomonocytic leukaemia
  5. FLUDARABINE [Concomitant]
     Active Substance: FLUDARABINE PHOSPHATE
     Indication: Chronic myelomonocytic leukaemia
  6. BUSULFAN [Concomitant]
     Active Substance: BUSULFAN
     Indication: Chronic myelomonocytic leukaemia
  7. THYMOCYTE IMMUNE GLOBULIN NOS [Concomitant]
     Active Substance: THYMOCYTE IMMUNE GLOBULIN NOS
     Indication: Chronic myelomonocytic leukaemia
  8. CYTARABINE\DAUNORUBICIN [Concomitant]
     Active Substance: CYTARABINE\DAUNORUBICIN
     Indication: Chronic myelomonocytic leukaemia
  9. CYCLOSPORINE [Concomitant]
     Active Substance: CYCLOSPORINE
     Indication: Prophylaxis against graft versus host disease
  10. MYCOPHENOLATE MOFETIL [Concomitant]
     Active Substance: MYCOPHENOLATE MOFETIL
     Indication: Prophylaxis against graft versus host disease
  11. POSACONAZOLE [Concomitant]
     Active Substance: POSACONAZOLE
     Indication: Antifungal prophylaxis
  12. RUXOLITINIB [Concomitant]
     Active Substance: RUXOLITINIB
     Indication: Acute graft versus host disease
  13. ETOPOSIDE [Concomitant]
     Active Substance: ETOPOSIDE
     Indication: Bone marrow conditioning regimen
  14. FLUDARABINE [Concomitant]
     Active Substance: FLUDARABINE PHOSPHATE
     Indication: Bone marrow conditioning regimen
  15. FLUDARABINE [Concomitant]
     Active Substance: FLUDARABINE PHOSPHATE
     Indication: Bone marrow conditioning regimen
  16. BUSULFAN [Concomitant]
     Active Substance: BUSULFAN
     Indication: Bone marrow conditioning regimen
  17. THYMOCYTE IMMUNE GLOBULIN NOS [Concomitant]
     Active Substance: THYMOCYTE IMMUNE GLOBULIN NOS
     Indication: Bone marrow conditioning regimen
  18. CYTARABINE\DAUNORUBICIN [Concomitant]
     Active Substance: CYTARABINE\DAUNORUBICIN
     Indication: Bone marrow conditioning regimen
  19. CYCLOPHOSPHAMIDE [Suspect]
     Active Substance: CYCLOPHOSPHAMIDE
     Indication: Chronic myelomonocytic leukaemia
  20. THIOTEPA [Concomitant]
     Active Substance: THIOTEPA
     Indication: Bone marrow conditioning regimen
  21. CYCLOPHOSPHAMIDE [Suspect]
     Active Substance: CYCLOPHOSPHAMIDE
     Indication: Bone marrow conditioning regimen
  22. CYCLOPHOSPHAMIDE [Suspect]
     Active Substance: CYCLOPHOSPHAMIDE
     Indication: Bone marrow conditioning regimen
  23. CYCLOPHOSPHAMIDE [Suspect]
     Active Substance: CYCLOPHOSPHAMIDE
     Indication: Prophylaxis against graft versus host disease

REACTIONS (6)
  - Enterocolitis [Unknown]
  - Alopecia [Unknown]
  - Stomatitis [Unknown]
  - Drug ineffective [Unknown]
  - Epstein-Barr virus infection [Unknown]
  - Alpha haemolytic streptococcal infection [Unknown]
